FAERS Safety Report 8855099 (Version 4)
Quarter: 2015Q2

REPORT INFORMATION
  Report Type: Spontaneous
  Country: US (occurrence: US)
  Receive Date: 20121023
  Receipt Date: 20150403
  Transmission Date: 20150821
  Serious: Yes (Hospitalization, Disabling)
  Sender: FDA-Public Use
  Company Number: US-009507513-1210USA007118

PATIENT
  Sex: Male
  Weight: 80.27 kg

DRUGS (3)
  1. PROPECIA [Suspect]
     Active Substance: FINASTERIDE
     Indication: ALOPECIA
     Dosage: 1 MG, QD
     Route: 048
     Dates: start: 1997, end: 199910
  2. PROSCAR [Suspect]
     Active Substance: FINASTERIDE
     Indication: ALOPECIA
     Dosage: 5 MG, QD
     Route: 048
     Dates: start: 1995, end: 1999
  3. PROSCAR [Suspect]
     Active Substance: FINASTERIDE
     Indication: BENIGN PROSTATIC HYPERPLASIA

REACTIONS (33)
  - Facial lesion excision [Unknown]
  - Skin lesion [Unknown]
  - Lyme disease [Unknown]
  - Cognitive disorder [Unknown]
  - Pneumonia [Unknown]
  - Sexual dysfunction [Unknown]
  - Depression [Not Recovered/Not Resolved]
  - Erectile dysfunction [Unknown]
  - Malaise [Recovering/Resolving]
  - Hypogonadism [Unknown]
  - Scarlet fever [Unknown]
  - Viral upper respiratory tract infection [Unknown]
  - White blood cell count decreased [Unknown]
  - Chest pain [Unknown]
  - Eye irritation [Unknown]
  - Rhinitis [Unknown]
  - Headache [Not Recovered/Not Resolved]
  - Muscle atrophy [Unknown]
  - Dihydrotestosterone decreased [Unknown]
  - Blood testosterone increased [Unknown]
  - Upper respiratory tract infection [Unknown]
  - Urinary tract infection [Unknown]
  - Erectile dysfunction [Recovered/Resolved]
  - Asthenia [Recovered/Resolved]
  - Hypertension [Unknown]
  - Migraine [Unknown]
  - Loss of libido [Recovered/Resolved]
  - Fatigue [Recovering/Resolving]
  - Influenza [Unknown]
  - Anxiety [Unknown]
  - Ejaculation disorder [Unknown]
  - Weight decreased [Recovering/Resolving]
  - Gynaecomastia [Unknown]

NARRATIVE: CASE EVENT DATE: 19951206
